FAERS Safety Report 24701070 (Version 1)
Quarter: 2024Q4

REPORT INFORMATION
  Report Type: Spontaneous
  Country: US (occurrence: None)
  Receive Date: 20241204
  Receipt Date: 20241204
  Transmission Date: 20250115
  Serious: Yes (Other)
  Sender: Public
  Company Number: None

PATIENT
  Age: 73 Year
  Sex: Female
  Weight: 50.85 kg

DRUGS (2)
  1. FAMOTIDINE [Suspect]
     Active Substance: FAMOTIDINE
     Indication: Gastritis
     Dosage: FREQUENCY : DAILY;?
     Route: 048
     Dates: start: 20240913, end: 20241013
  2. FAMOTIDINE [Concomitant]
     Active Substance: FAMOTIDINE
     Dates: start: 20240913, end: 20241013

REACTIONS (5)
  - Nightmare [None]
  - Confusional state [None]
  - Disorientation [None]
  - Delusion [None]
  - Therapy cessation [None]

NARRATIVE: CASE EVENT DATE: 20241013
